FAERS Safety Report 8320775-9 (Version None)
Quarter: 2012Q2

REPORT INFORMATION
  Report Type: 
  Country: None (occurrence: None)
  Receive Date: 20120430
  Receipt Date: 20120419
  Transmission Date: 20120825
  Serious: Yes (Hospitalization)
  Sender: FDA-Public Use
  Company Number: PHHY2012CA034017

PATIENT
  Sex: Female

DRUGS (1)
  1. EXJADE [Suspect]
     Indication: MYELODYSPLASTIC SYNDROME
     Dosage: 2 DF, A DAY
     Route: 048

REACTIONS (4)
  - NASOPHARYNGITIS [None]
  - DEHYDRATION [None]
  - SERUM FERRITIN INCREASED [None]
  - CLOSTRIDIUM DIFFICILE COLITIS [None]
